FAERS Safety Report 12411321 (Version 1)
Quarter: 2016Q2

REPORT INFORMATION
  Report Type: Spontaneous
  Country: US (occurrence: US)
  Receive Date: 20160527
  Receipt Date: 20160527
  Transmission Date: 20160815
  Serious: Yes (Other)
  Sender: FDA-Public Use
  Company Number: US-ASTRAZENECA-2016SE55071

PATIENT
  Age: 59 Year
  Sex: Female
  Weight: 90.7 kg

DRUGS (2)
  1. NEXIUM [Suspect]
     Active Substance: ESOMEPRAZOLE MAGNESIUM
     Indication: GASTROOESOPHAGEAL REFLUX DISEASE
     Dosage: 40.0MG UNKNOWN
     Route: 048
     Dates: start: 2011
  2. NEXIUM [Suspect]
     Active Substance: ESOMEPRAZOLE MAGNESIUM
     Indication: GASTROOESOPHAGEAL REFLUX DISEASE
     Dosage: 1 NEXIUM IN THE MORNING AND 1 BEFORE BEDTIME  UNKNOWN
     Route: 048
     Dates: start: 201605

REACTIONS (5)
  - Tremor [Not Recovered/Not Resolved]
  - Gastrooesophageal reflux disease [Recovered/Resolved]
  - Off label use [Unknown]
  - Hip fracture [Recovered/Resolved]
  - Pain [Recovered/Resolved]

NARRATIVE: CASE EVENT DATE: 2011
